FAERS Safety Report 6940875-5 (Version None)
Quarter: 2010Q3

REPORT INFORMATION
  Report Type: 
  Country: None (occurrence: None)
  Receive Date: 20100825
  Receipt Date: 20100816
  Transmission Date: 20110219
  Serious: Yes (Disabling)
  Sender: FDA-Public Use
  Company Number: US-MERCK-1008USA01988

PATIENT
  Age: 72 Year
  Sex: Female

DRUGS (5)
  1. DECADRON [Suspect]
     Indication: BACK PAIN
     Route: 048
     Dates: start: 20100510, end: 20100530
  2. EVISTA [Concomitant]
     Route: 065
  3. SIMVASTATIN [Concomitant]
     Route: 048
  4. QUINAPRIL HYDROCHLORIDE [Concomitant]
     Route: 065
  5. HYDROCHLOROTHIAZIDE [Concomitant]
     Route: 048

REACTIONS (3)
  - CELLULITIS [None]
  - LIVER FUNCTION TEST ABNORMAL [None]
  - OEDEMA PERIPHERAL [None]
